FAERS Safety Report 15863031 (Version 1)
Quarter: 2018Q4

REPORT INFORMATION
  Report Type: Spontaneous
  Country: US (occurrence: US)
  Receive Date: 20181228
  Receipt Date: 20181228
  Transmission Date: 20190205
  Serious: Yes (Hospitalization)
  Sender: FDA-Public Use
  Company Number: None

PATIENT
  Age: 69 Year
  Sex: Male
  Weight: 75 kg

DRUGS (1)
  1. CLONIDINE. [Suspect]
     Active Substance: CLONIDINE
     Indication: HYPERTENSION
     Dosage: ?          OTHER DOSE:0.1 MG;?
     Route: 048
     Dates: start: 20181115, end: 20181121

REACTIONS (2)
  - Hallucination [None]
  - Unresponsive to stimuli [None]

NARRATIVE: CASE EVENT DATE: 20181122
